FAERS Safety Report 5328629-7 (Version None)
Quarter: 2007Q2

REPORT INFORMATION
  Report Type: 
  Country: None (occurrence: None)
  Receive Date: 20070514
  Receipt Date: 20070427
  Transmission Date: 20071010
  Serious: Yes (Hospitalization)
  Sender: FDA-Public Use
  Company Number: L06-ITA-04329-03

PATIENT
  Age: 73 Year
  Sex: Female

DRUGS (5)
  1. MEMANTINE HCL [Suspect]
     Indication: DEMENTIA ALZHEIMER'S TYPE
     Dosage: 5 MG QD PO
     Route: 048
  2. PAROXETINE [Suspect]
  3. GALANTAMINE HYDROBROMIDE [Concomitant]
  4. QUETIAPINE FUMARATE [Concomitant]
  5. VITAMIN E(VITAMIN E/001105/) [Concomitant]

REACTIONS (6)
  - AGITATION [None]
  - CEREBRAL ATROPHY [None]
  - CONDITION AGGRAVATED [None]
  - DRUG INTERACTION [None]
  - GAIT DISTURBANCE [None]
  - HALLUCINATION, VISUAL [None]
